FAERS Safety Report 6030808-0 (Version None)
Quarter: 2009Q1

REPORT INFORMATION
  Report Type: 
  Country: None (occurrence: None)
  Receive Date: 20090107
  Receipt Date: 20081218
  Transmission Date: 20090719
  Serious: Yes (Other)
  Sender: FDA-Public Use
  Company Number: US-PFIZER INC-2008158158

PATIENT
  Sex: Male
  Weight: 79.365 kg

DRUGS (5)
  1. CHANTIX [Suspect]
     Indication: SMOKING CESSATION THERAPY
     Dosage: UNK
     Dates: start: 20070101
  2. KALETRA [Concomitant]
     Dosage: UNK
  3. TRUVADA [Concomitant]
     Dosage: UNK
  4. LYRICA [Concomitant]
     Dosage: UNK
  5. CLONAZEPAM [Concomitant]
     Dosage: UNK

REACTIONS (3)
  - HOMICIDAL IDEATION [None]
  - MAJOR DEPRESSION [None]
  - WHITE BLOOD CELL COUNT DECREASED [None]
